FAERS Safety Report 8308266-2 (Version None)
Quarter: 2012Q2

REPORT INFORMATION
  Report Type: 
  Country: None (occurrence: None)
  Receive Date: 20120424
  Receipt Date: 20120409
  Transmission Date: 20120825
  Serious: Yes (Death, Other)
  Sender: FDA-Public Use
  Company Number: US-ROCHE-1059287

PATIENT

DRUGS (7)
  1. MABTHERA [Suspect]
     Indication: MALIGNANT LYMPHOID NEOPLASM
     Route: 042
  2. VINCRISTINE [Suspect]
     Indication: MALIGNANT LYMPHOID NEOPLASM
  3. CYCLOPHOSPHAMIDE [Suspect]
     Indication: MALIGNANT LYMPHOID NEOPLASM
     Route: 042
  4. DOXORUBICIN HCL [Suspect]
     Indication: MALIGNANT LYMPHOID NEOPLASM
  5. ETOPOSIDE [Suspect]
     Indication: MALIGNANT LYMPHOID NEOPLASM
  6. PREDNISONE TAB [Suspect]
     Indication: MALIGNANT LYMPHOID NEOPLASM
     Route: 048
  7. FLUDARABINE PHOSPHATE [Suspect]
     Indication: MALIGNANT LYMPHOID NEOPLASM
     Route: 042

REACTIONS (9)
  - NEUTROPENIA [None]
  - NEUROTOXICITY [None]
  - TOXICITY TO VARIOUS AGENTS [None]
  - SEPSIS [None]
  - INFECTION [None]
  - FEBRILE NEUTROPENIA [None]
  - CARDIOTOXICITY [None]
  - THROMBOCYTOPENIA [None]
  - GASTROINTESTINAL TOXICITY [None]
